FAERS Safety Report 23998022 (Version 3)
Quarter: 2024Q3

REPORT INFORMATION
  Report Type: Spontaneous
  Country: DE (occurrence: DE)
  Receive Date: 20240621
  Receipt Date: 20240806
  Transmission Date: 20241017
  Serious: Yes (Hospitalization, Other)
  Sender: SANDOZ
  Company Number: None

PATIENT
  Age: 55 Year
  Sex: Male

DRUGS (15)
  1. CLINDAMYCIN [Suspect]
     Active Substance: CLINDAMYCIN
     Indication: Wound infection staphylococcal
     Dosage: 600 MG, 8 HOUR(S)
     Route: 065
  2. ATORVASTATIN [Concomitant]
     Active Substance: ATORVASTATIN
     Indication: Hyperlipidaemia
     Dosage: 40 MG
     Route: 065
  3. DOXAZOSIN [Concomitant]
     Active Substance: DOXAZOSIN MESYLATE
     Indication: Hypertension
     Dosage: 4 MG
     Route: 065
  4. Indacaterol maleate and glycopyrronium bromide [Concomitant]
     Indication: Chronic obstructive pulmonary disease
     Route: 065
  5. INHALERIN [Concomitant]
     Indication: Product used for unknown indication
     Dosage: UNK
     Route: 065
  6. METFORMIN [Concomitant]
     Active Substance: METFORMIN HYDROCHLORIDE
     Indication: Type 2 diabetes mellitus
     Dosage: 1000 MG
     Route: 065
  7. METOPROLOL [Concomitant]
     Active Substance: METOPROLOL
     Indication: Hypertension
     Dosage: 47.5 MG
     Route: 065
  8. NALOXONE HYDROCHLORIDE\OXYCODONE HYDROCHLORIDE [Concomitant]
     Active Substance: NALOXONE HYDROCHLORIDE\OXYCODONE HYDROCHLORIDE
     Indication: Pain
     Route: 065
  9. PREGABALIN [Concomitant]
     Active Substance: PREGABALIN
     Indication: Product used for unknown indication
     Dosage: 50 MG
     Route: 065
  10. RAMIPRIL [Concomitant]
     Active Substance: RAMIPRIL
     Indication: Hypertension
     Dosage: 5 MG
     Route: 065
  11. SITAGLIPTIN [Concomitant]
     Active Substance: SITAGLIPTIN
     Indication: Type 2 diabetes mellitus
     Dosage: 100 MG
     Route: 065
  12. AMLODIPINE [Interacting]
     Active Substance: AMLODIPINE BESYLATE
     Indication: Hypertension
     Dosage: 5 MG
     Route: 065
  13. ASPIRIN [Interacting]
     Active Substance: ASPIRIN
     Indication: Thrombosis prophylaxis
     Dosage: 100 MG, QD
     Route: 065
  14. DIPYRONE [Interacting]
     Active Substance: DIPYRONE
     Indication: Pain
     Dosage: 500 MG, QD, 2-2-2-2
     Route: 065
  15. PHENPROCOUMON [Interacting]
     Active Substance: PHENPROCOUMON
     Indication: Thrombosis prophylaxis
     Dosage: 3 MG MILLGRAM(S) EVERY WEEKS, 7 TABLETS
     Route: 065

REACTIONS (3)
  - Epistaxis [Recovering/Resolving]
  - Drug interaction [Recovering/Resolving]
  - International normalised ratio increased [Recovered/Resolved]
